FAERS Safety Report 7543240-5 (Version None)
Quarter: 2011Q2

REPORT INFORMATION
  Report Type: 
  Country: None (occurrence: None)
  Receive Date: 20110613
  Receipt Date: 20110602
  Transmission Date: 20111010
  Serious: Yes (Hospitalization, Other)
  Sender: FDA-Public Use
  Company Number: US-AMGEN-USASP2011020493

PATIENT
  Age: 83 Year
  Sex: Female

DRUGS (1)
  1. ENBREL [Suspect]
     Indication: RHEUMATOID ARTHRITIS
     Dosage: 50 MG, QWK
     Dates: start: 20090101

REACTIONS (14)
  - BLOOD PRESSURE INCREASED [None]
  - BLOOD THYROID STIMULATING HORMONE DECREASED [None]
  - THERAPEUTIC RESPONSE DECREASED [None]
  - VISUAL IMPAIRMENT [None]
  - NEEDLE ISSUE [None]
  - WRIST SURGERY [None]
  - ELECTROLYTE IMBALANCE [None]
  - INJECTION SITE HAEMATOMA [None]
  - INJECTION SITE PAIN [None]
  - PARKINSON'S DISEASE [None]
  - SPINAL DEFORMITY [None]
  - VISION BLURRED [None]
  - SPEECH DISORDER [None]
  - INCREASED TENDENCY TO BRUISE [None]
